FAERS Safety Report 8593637-X (Version None)
Quarter: 2012Q3

REPORT INFORMATION
  Report Type: 
  Country: None (occurrence: None)
  Receive Date: 20120814
  Receipt Date: 20120713
  Transmission Date: 20120928
  Serious: No
  Sender: FDA-Public Use
  Company Number: US-ASTRAZENECA-2012SE48820

PATIENT
  Age: 89 Year
  Sex: Female
  Weight: 54.4 kg

DRUGS (5)
  1. SYMBICORT [Suspect]
     Indication: BRONCHITIS
     Dosage: TWO PUFFS DAILY
     Route: 055
     Dates: start: 20120101
  2. SYMBICORT [Suspect]
     Dosage: ONE PUFF DAILY
     Route: 055
     Dates: end: 20120711
  3. CALCIUM [Concomitant]
  4. GABAPENTIN [Concomitant]
  5. XOPENEX [Concomitant]

REACTIONS (8)
  - THROAT IRRITATION [None]
  - UPPER RESPIRATORY TRACT INFECTION [None]
  - MULTIPLE ALLERGIES [None]
  - HEADACHE [None]
  - PNEUMONIA [None]
  - BACK PAIN [None]
  - PAIN [None]
  - FATIGUE [None]
